FAERS Safety Report 14337037 (Version 1)
Quarter: 2017Q4

REPORT INFORMATION
  Report Type: Spontaneous
  Country: US (occurrence: US)
  Receive Date: 20171228
  Receipt Date: 20171228
  Transmission Date: 20180321
  Serious: Yes (Life-Threatening, Hospitalization, Disabling, Other)
  Sender: FDA-Public Use
  Company Number: None

PATIENT
  Age: 63 Year
  Sex: Female
  Weight: 170 kg

DRUGS (1)
  1. HUMIRA [Suspect]
     Active Substance: ADALIMUMAB
     Indication: PSORIATIC ARTHROPATHY

REACTIONS (10)
  - Psoriasis [None]
  - Demyelination [None]
  - Immunodeficiency [None]
  - Psoriatic arthropathy [None]
  - Neuropathy peripheral [None]
  - Colitis [None]
  - Hepatic steatosis [None]
  - Cerebral atrophy [None]
  - Lymphoma [None]
  - Cardiac failure congestive [None]

NARRATIVE: CASE EVENT DATE: 20070101
